FAERS Safety Report 18947380 (Version 2)
Quarter: 2021Q1

REPORT INFORMATION
  Report Type: Spontaneous
  Country: FR (occurrence: FR)
  Receive Date: 20210226
  Receipt Date: 20210320
  Transmission Date: 20210420
  Serious: Yes (Hospitalization, Other)
  Sender: FDA-Public Use
  Company Number: FR-ASTRAZENECA-2021A080698

PATIENT
  Age: 258 Month
  Sex: Female
  Weight: 64 kg

DRUGS (4)
  1. XEROQUEL [Suspect]
     Active Substance: QUETIAPINE FUMARATE
     Indication: SCHIZOPHRENIA
     Dosage: TABLET_SR
     Route: 048
     Dates: start: 20210121, end: 20210219
  2. CYAMEMAZINE [Suspect]
     Active Substance: CYAMEMAZINE
     Route: 065
  3. TROPATEPINE [Suspect]
     Active Substance: TROPATEPINE
     Route: 065
  4. DIAZEPAM. [Suspect]
     Active Substance: DIAZEPAM
     Route: 065

REACTIONS (6)
  - Anticholinergic syndrome [Recovering/Resolving]
  - Fatigue [Unknown]
  - Somnolence [Unknown]
  - Muscle spasms [Unknown]
  - Accommodation disorder [Unknown]
  - Mydriasis [Unknown]

NARRATIVE: CASE EVENT DATE: 202102
